FAERS Safety Report 12260205 (Version 1)
Quarter: 2016Q2

REPORT INFORMATION
  Report Type: Spontaneous
  Country: US (occurrence: US)
  Receive Date: 20160412
  Receipt Date: 20160412
  Transmission Date: 20160815
  Serious: No
  Sender: FDA-Public Use
  Company Number: US-SA-2015SA185500

PATIENT
  Age: 75 Year
  Sex: Female

DRUGS (1)
  1. ALLEGRA [Suspect]
     Active Substance: FEXOFENADINE HYDROCHLORIDE
     Indication: SINUS HEADACHE
     Dosage: TAKEN FROM: 12PM WEDNESDAY?END DATE: 12 AM LAST NIGHT LD
     Route: 048

REACTIONS (1)
  - Drug ineffective [Unknown]
